FAERS Safety Report 6215066-6 (Version None)
Quarter: 2009Q2

REPORT INFORMATION
  Report Type: 
  Country: None (occurrence: None)
  Receive Date: 20090604
  Receipt Date: 20090218
  Transmission Date: 20091009
  Serious: No
  Sender: FDA-Public Use
  Company Number: US-ASTRAZENECA-2009UW04633

PATIENT
  Age: 44 Year
  Sex: Female
  Weight: 65.8 kg

DRUGS (2)
  1. PRILOSEC [Suspect]
     Indication: GASTROOESOPHAGEAL REFLUX DISEASE
     Route: 048
     Dates: start: 20040101
  2. ALBUTEROL [Concomitant]
     Indication: ASTHMA

REACTIONS (2)
  - SKIN BURNING SENSATION [None]
  - URINARY TRACT INFECTION [None]
